FAERS Safety Report 4989070-X (Version None)
Quarter: 2006Q2

REPORT INFORMATION
  Report Type: 
  Country: None (occurrence: None)
  Receive Date: 20060425
  Receipt Date: 20060410
  Transmission Date: 20061013
  Serious: Yes (Hospitalization)
  Sender: FDA-Public Use
  Company Number: 2006053804

PATIENT
  Sex: Female

DRUGS (3)
  1. DOSTINEX [Suspect]
     Indication: HYPERPROLACTINAEMIA
     Dosage: 1.5 MG (1 IN 1 WK), ORAL
     Route: 048
  2. CONTRACEPTIVE, UNSPECIFIED (CONTRACEPTIVE, UNSPECIFIED) [Concomitant]
  3. FOLIC ACID [Concomitant]

REACTIONS (1)
  - PANCREATITIS [None]
